FAERS Safety Report 7272652-2 (Version None)
Quarter: 2011Q1

REPORT INFORMATION
  Report Type: 
  Country: None (occurrence: None)
  Receive Date: 20110203
  Receipt Date: 20110201
  Transmission Date: 20110831
  Serious: Yes (Death, Hospitalization)
  Sender: FDA-Public Use
  Company Number: US-AMGEN-QUU427358

PATIENT
  Age: 90 Year
  Sex: Male

DRUGS (11)
  1. CYANOCOBALAMIN [Concomitant]
     Dosage: 1000 A?G, QD
     Route: 048
  2. FUROSEMIDE [Concomitant]
     Dosage: 20 MG, QD
     Route: 048
  3. IRON SULFATETHIAMIN COMPOUND TAB [Concomitant]
     Dosage: 300 MG, BID
     Route: 048
  4. ACETAMINOPHEN AND HYDROCODONE BITARTRATE [Concomitant]
     Dosage: UNK UNK, PRN
     Route: 048
  5. TAMSULOSIN HCL [Concomitant]
     Dosage: .4 MG, QD
     Route: 048
  6. METOPROLOL TARTRATE [Concomitant]
     Dosage: 12.5 MG, BID
     Route: 048
  7. NPLATE [Suspect]
     Indication: IDIOPATHIC THROMBOCYTOPENIC PURPURA
     Dosage: 110 A?G, UNK
     Dates: start: 20081107, end: 20081226
  8. ACETAMINOPHEN [Concomitant]
     Dosage: 650 MG, PRN
     Route: 048
  9. NPLATE [Suspect]
     Dates: start: 20081107, end: 20081226
  10. ESOMEPRAZOLE MAGNESIUM [Concomitant]
     Dosage: 40 MG, QD
     Route: 048
  11. FOLIC ACID [Concomitant]
     Dosage: 2 MG, QD
     Route: 048

REACTIONS (4)
  - EPISTAXIS [None]
  - DEATH [None]
  - PLEURAL EFFUSION [None]
  - THROMBOCYTOPENIA [None]
